FAERS Safety Report 7798072-X (Version None)
Quarter: 2011Q4

REPORT INFORMATION
  Report Type: 
  Country: None (occurrence: None)
  Receive Date: 20111005
  Receipt Date: 20110929
  Transmission Date: 20120403
  Serious: Yes (Death, Other)
  Sender: FDA-Public Use
  Company Number: US-CELGENEUS-163-21880-11100068

PATIENT
  Sex: Male

DRUGS (9)
  1. FLUOXETINE [Concomitant]
     Route: 065
  2. REVLIMID [Suspect]
     Dosage: 10 MILLIGRAM
     Route: 048
     Dates: start: 20110801
  3. LORAZEPAM [Concomitant]
     Route: 065
  4. TAMSULOSIN HCL [Concomitant]
     Route: 065
  5. COMPAZINE [Concomitant]
     Indication: NAUSEA
     Route: 065
  6. GABAPENTIN [Concomitant]
     Route: 065
  7. REVLIMID [Suspect]
     Indication: AMYLOIDOSIS
     Dosage: 10 MILLIGRAM
     Route: 048
     Dates: start: 20100901, end: 20110401
  8. COMPAZINE [Concomitant]
     Indication: VOMITING
  9. PROAIR HFA [Concomitant]
     Route: 065

REACTIONS (7)
  - HYPOXIA [None]
  - VOMITING [None]
  - DEATH [None]
  - PNEUMONIA [None]
  - HYPERKALAEMIA [None]
  - DIZZINESS [None]
  - DIARRHOEA [None]
